FAERS Safety Report 8033489-X (Version None)
Quarter: 2011Q4

REPORT INFORMATION
  Report Type: 
  Country: None (occurrence: None)
  Receive Date: 20111202
  Receipt Date: 20101015
  Transmission Date: 20120403
  Serious: Yes (Other)
  Sender: FDA-Public Use
  Company Number: WAES 0901USA02260

PATIENT
  Age: 68 Year
  Sex: Female

DRUGS (3)
  1. FOSAMAX [Suspect]
     Indication: OSTEOPOROSIS
     Dosage: 70 MG/WKY/PO
     Route: 048
     Dates: start: 20050608
  2. LOVASTATIN [Concomitant]
  3. ZOMETA [Suspect]
     Indication: BREAST CANCER
     Dosage: UNK/UNK/UNK
     Dates: start: 20060101

REACTIONS (24)
  - INFLUENZA [None]
  - HYPERPLASIA [None]
  - MYALGIA [None]
  - CHEST PAIN [None]
  - OSTEONECROSIS [None]
  - ABSCESS [None]
  - NASOPHARYNGITIS [None]
  - GASTRITIS [None]
  - TOOTH ABSCESS [None]
  - WEIGHT DECREASED [None]
  - VITAMIN D DEFICIENCY [None]
  - HYPERCHOLESTEROLAEMIA [None]
  - TOOTH DISORDER [None]
  - ORAL INFECTION [None]
  - ANXIETY [None]
  - GINGIVITIS [None]
  - OSTEOPENIA [None]
  - DEPRESSION [None]
  - DUODENITIS [None]
  - HIATUS HERNIA [None]
  - ARTHRALGIA [None]
  - ADVERSE DRUG REACTION [None]
  - DYSENTERY [None]
  - INSOMNIA [None]
